FAERS Safety Report 9572349 (Version 1)
Quarter: 2013Q3

REPORT INFORMATION
  Report Type: Spontaneous
  Country: US (occurrence: None)
  Receive Date: 20130930
  Receipt Date: 20130930
  Transmission Date: 20140515
  Serious: No
  Sender: FDA-Public Use
  Company Number: None

PATIENT
  Sex: 0

DRUGS (1)
  1. ULORIC [Suspect]
     Indication: GOUT
     Dates: start: 20130613, end: 201308

REACTIONS (1)
  - Hallucination, visual [None]
